FAERS Safety Report 5069467-2 (Version None)
Quarter: 2006Q3

REPORT INFORMATION
  Report Type: 
  Country: None (occurrence: None)
  Receive Date: 20060731
  Receipt Date: 20060720
  Transmission Date: 20061208
  Serious: Yes (Hospitalization, Other)
  Sender: FDA-Public Use
  Company Number: 2006-07-1595

PATIENT
  Age: 59 Year
  Sex: Female

DRUGS (8)
  1. PEG-INTRON (PEGINTRON ALFA-2B) REDIPEN [Suspect]
     Indication: HEPATITIS C
     Dosage: SUBCUTANEOUS
     Route: 058
     Dates: start: 20060521, end: 20060101
  2. RIBAVIRIN [Suspect]
     Indication: HEPATITIS C
     Dosage: ORAL
     Route: 048
     Dates: start: 20060521
  3. NEURONTIN [Concomitant]
  4. NEXIUM [Concomitant]
  5. EFFEXOR [Concomitant]
  6. CYTOMEL [Concomitant]
  7. PROPRANOLOL HYDROCHLORIDE TABLETS [Concomitant]
  8. DEPAKOTE [Concomitant]

REACTIONS (5)
  - DECREASED APPETITE [None]
  - DEHYDRATION [None]
  - DIARRHOEA [None]
  - INSOMNIA [None]
  - PNEUMONIA [None]
